FAERS Safety Report 16513859 (Version 1)
Quarter: 2019Q3

REPORT INFORMATION
  Report Type: Spontaneous
  Country: US (occurrence: US)
  Receive Date: 20190701
  Receipt Date: 20190701
  Transmission Date: 20191004
  Serious: No
  Sender: FDA-Public Use
  Company Number: US-ROCHE-2212188

PATIENT
  Age: 20 Year
  Sex: Female

DRUGS (1)
  1. KLONOPIN [Suspect]
     Active Substance: CLONAZEPAM
     Indication: PANIC DISORDER
     Route: 065

REACTIONS (9)
  - Dizziness [Unknown]
  - Insomnia [Unknown]
  - Muscle spasms [Unknown]
  - Chest pain [Unknown]
  - Panic attack [Unknown]
  - Peripheral swelling [Unknown]
  - Pain [Unknown]
  - Feeling abnormal [Unknown]
  - Tinnitus [Unknown]
